FAERS Safety Report 6522981-2 (Version None)
Quarter: 2009Q4

REPORT INFORMATION
  Report Type: 
  Country: None (occurrence: None)
  Receive Date: 20091230
  Receipt Date: 20091217
  Transmission Date: 20100525
  Serious: Yes (Death)
  Sender: FDA-Public Use
  Company Number: JP-WATSON-2009-10836

PATIENT
  Age: 68 Year
  Sex: Male

DRUGS (1)
  1. HEPARIN SODIUM [Suspect]
     Indication: INFARCTION
     Dosage: UNK

REACTIONS (4)
  - CARDIAC FAILURE [None]
  - EMBOLISM [None]
  - FAT EMBOLISM [None]
  - HEPARIN-INDUCED THROMBOCYTOPENIA [None]
